FAERS Safety Report 20887145 (Version 1)
Quarter: 2022Q2

REPORT INFORMATION
  Report Type: Spontaneous
  Country: CO (occurrence: CO)
  Receive Date: 20220528
  Receipt Date: 20220528
  Transmission Date: 20220721
  Serious: Yes (Life-Threatening, Hospitalization)
  Sender: FDA-Public Use
  Company Number: CO-LUPIN PHARMACEUTICALS INC.-2022-07646

PATIENT
  Age: 10 Month
  Sex: Male

DRUGS (11)
  1. METHYLPREDNISOLONE [Suspect]
     Active Substance: METHYLPREDNISOLONE
     Indication: Multisystem inflammatory syndrome in children
     Dosage: UNK
     Route: 065
  2. HUMAN IMMUNOGLOBULIN G [Suspect]
     Active Substance: HUMAN IMMUNOGLOBULIN G
     Indication: Multisystem inflammatory syndrome in children
     Dosage: UNK
     Route: 065
  3. CYCLOSPORINE [Suspect]
     Active Substance: CYCLOSPORINE
     Indication: Multisystem inflammatory syndrome in children
     Dosage: UNK
     Route: 065
  4. N ACETYL CYSTEIN [Concomitant]
     Indication: Acute hepatic failure
     Dosage: UNK
     Route: 065
  5. ASPARTIC ACID [Concomitant]
     Active Substance: ASPARTIC ACID
     Indication: Acute hepatic failure
     Dosage: UNK
     Route: 065
  6. LACTULOSE [Concomitant]
     Active Substance: LACTULOSE
     Indication: Acute hepatic failure
     Dosage: UNK
     Route: 065
  7. ORNITHINE [Concomitant]
     Active Substance: ORNITHINE
     Indication: Acute hepatic failure
     Dosage: UNK
     Route: 065
  8. PHYTONADIONE [Concomitant]
     Active Substance: PHYTONADIONE
     Indication: Acute hepatic failure
     Dosage: UNK
     Route: 065
  9. POLYETHYLENE GLYCOL [Concomitant]
     Active Substance: POLYETHYLENE GLYCOL
     Indication: Acute hepatic failure
     Dosage: UNK
     Route: 065
  10. SODIUM BENZOATE [Concomitant]
     Active Substance: SODIUM BENZOATE
     Indication: Acute hepatic failure
     Dosage: UNK
     Route: 065
  11. URSODIOL [Concomitant]
     Active Substance: URSODIOL
     Indication: Acute hepatic failure
     Dosage: UNK
     Route: 065

REACTIONS (2)
  - Drug ineffective for unapproved indication [Unknown]
  - Off label use [Unknown]
